FAERS Safety Report 4877715-4 (Version None)
Quarter: 2005Q4

REPORT INFORMATION
  Report Type: 
  Country: None (occurrence: None)
  Receive Date: 20051206
  Receipt Date: 20050923
  Transmission Date: 20060501
  Serious: No
  Sender: FDA-Public Use
  Company Number: USA0509108769

PATIENT
  Age: 51 Year
  Sex: Female

DRUGS (15)
  1. CYMBALTA [Suspect]
     Indication: DEPRESSION
     Dosage: 90 MG
     Dates: start: 20050701
  2. CYMBALTA [Suspect]
     Indication: PANIC REACTION
     Dosage: 90 MG
     Dates: start: 20050701
  3. ZOLOFT [Concomitant]
  4. CIPRO [Concomitant]
  5. MORPHINE SULFATE [Concomitant]
  6. LANTUS [Concomitant]
  7. HUMALOG [Concomitant]
  8. ACTOS [Concomitant]
  9. LAMICTAL [Concomitant]
  10. ZOLOFT [Concomitant]
  11. DILANTIN [Concomitant]
  12. PREDNISONE [Concomitant]
  13. DOXEPIN [Concomitant]
  14. CLONIDINE [Concomitant]
  15. ZOFRAN [Concomitant]

REACTIONS (12)
  - COLD SWEAT [None]
  - DEPRESSION [None]
  - DRUG INEFFECTIVE [None]
  - FEELING ABNORMAL [None]
  - FEELING COLD [None]
  - GASTROOESOPHAGEAL REFLUX DISEASE [None]
  - HYPERHIDROSIS [None]
  - NAUSEA [None]
  - NERVOUSNESS [None]
  - PANIC REACTION [None]
  - RESTLESSNESS [None]
  - VOMITING [None]
